FAERS Safety Report 8818750 (Version 2)
Quarter: 2014Q3

REPORT INFORMATION
  Report Type: Report from Study
  Country: US (occurrence: US)
  Receive Date: 20121001
  Receipt Date: 20140909
  Transmission Date: 20150326
  Serious: Yes (Other)
  Sender: FDA-Public Use
  Company Number: US-ROCHE-1124700

PATIENT
  Age: 81 Year
  Sex: Female

DRUGS (6)
  1. HERCEPTIN [Suspect]
     Active Substance: TRASTUZUMAB
     Indication: BREAST CANCER FEMALE
     Dosage: LOADING DOSE
     Route: 042
     Dates: start: 20000217
  2. HERCEPTIN [Suspect]
     Active Substance: TRASTUZUMAB
     Dosage: MAINTENANCE DOSE
     Route: 042
  3. TAXOL [Concomitant]
     Active Substance: PACLITAXEL
  4. AUGMENTIN [Concomitant]
     Active Substance: AMOXICILLIN\CLAVULANATE POTASSIUM
     Route: 048
  5. SENOKOT [Concomitant]
     Active Substance: SENNOSIDES
  6. HERCEPTIN [Suspect]
     Active Substance: TRASTUZUMAB
     Route: 042

REACTIONS (28)
  - Metastases to bone [Unknown]
  - Skin mass [Unknown]
  - Metastases to pelvis [Unknown]
  - Stomatitis [Unknown]
  - Asthenia [Unknown]
  - Mass [Unknown]
  - Malaise [Unknown]
  - Pollakiuria [Unknown]
  - Constipation [Unknown]
  - Rhinorrhoea [Unknown]
  - Hypoaesthesia [Unknown]
  - Neutropenia [Unknown]
  - Respiratory tract infection [Unknown]
  - Metastases to spine [Unknown]
  - Fatigue [Unknown]
  - Decreased appetite [Unknown]
  - Urticaria [Unknown]
  - Weight decreased [Unknown]
  - Micturition urgency [Unknown]
  - Anaemia [Unknown]
  - Alopecia [Unknown]
  - Fall [Unknown]
  - Diarrhoea [Unknown]
  - Cough [Unknown]
  - Malignant neoplasm of thorax [Unknown]
  - Paraesthesia [Unknown]
  - Insomnia [Unknown]
  - Sinusitis [Unknown]

NARRATIVE: CASE EVENT DATE: 20000224
